FAERS Safety Report 14179468 (Version 1)
Quarter: 2017Q4

REPORT INFORMATION
  Report Type: Spontaneous
  Country: US (occurrence: US)
  Receive Date: 20171110
  Receipt Date: 20171110
  Transmission Date: 20180321
  Serious: Yes (Other)
  Sender: FDA-Public Use
  Company Number: US-ASTELLAS-2017US045659

PATIENT
  Sex: Male

DRUGS (2)
  1. CHARCOAL [Suspect]
     Active Substance: ACTIVATED CHARCOAL
     Indication: ACCIDENTAL OVERDOSE
     Dosage: UNK UNK, UNKNOWN FREQ.
     Route: 065
  2. XTANDI [Suspect]
     Active Substance: ENZALUTAMIDE
     Indication: PRODUCT USED FOR UNKNOWN INDICATION
     Route: 065
     Dates: start: 201707

REACTIONS (2)
  - Nausea [Unknown]
  - Accidental overdose [Unknown]
